FAERS Safety Report 10541493 (Version 2)
Quarter: 2014Q4

REPORT INFORMATION
  Report Type: Report from Study
  Country: JP (occurrence: JP)
  Receive Date: 20141024
  Receipt Date: 20141112
  Transmission Date: 20150529
  Serious: Yes (Other)
  Sender: FDA-Public Use
  Company Number: JP-009507513-1410JPN012146

PATIENT
  Age: 66 Year
  Sex: Male
  Weight: 78 kg

DRUGS (5)
  1. URSO [Concomitant]
     Active Substance: URSODIOL
     Dosage: 100 MG, QD
     Route: 048
     Dates: start: 20140203, end: 2014
  2. PEGINTRON [Suspect]
     Active Substance: PEGINTERFERON ALFA-2B
     Indication: CHRONIC HEPATITIS C
     Dosage: 1.4 MICROGRAM PER KILOGRAM, QW
     Route: 058
     Dates: start: 20140407
  3. SIMEPREVIR [Suspect]
     Active Substance: SIMEPREVIR
     Indication: CHRONIC HEPATITIS C
     Dosage: 100 MG, QD
     Route: 048
     Dates: start: 20140407, end: 20140629
  4. RIBAVIRIN. [Suspect]
     Active Substance: RIBAVIRIN
     Indication: CHRONIC HEPATITIS C
     Dosage: 800 MG, QD
     Route: 048
     Dates: start: 20140407, end: 20140630
  5. RIBAVIRIN. [Suspect]
     Active Substance: RIBAVIRIN
     Dosage: 700 MG, QD
     Route: 048
     Dates: start: 20140701

REACTIONS (4)
  - Rash [Recovering/Resolving]
  - White blood cell count decreased [Recovered/Resolved]
  - Hyperbilirubinaemia [Recovered/Resolved]
  - Haemolytic anaemia [Not Recovered/Not Resolved]

NARRATIVE: CASE EVENT DATE: 20140412
